FAERS Safety Report 14281091 (Version 4)
Quarter: 2018Q1

REPORT INFORMATION
  Report Type: Spontaneous
  Country: JP (occurrence: JP)
  Receive Date: 20171213
  Receipt Date: 20180209
  Transmission Date: 20180508
  Serious: Yes (Hospitalization)
  Sender: FDA-Public Use
  Company Number: JP-JNJFOC-20171211314

PATIENT
  Age: 74 Year
  Sex: Male
  Weight: 92 kg

DRUGS (20)
  1. AZITHROMYCIN ANHYDROUS. [Suspect]
     Active Substance: AZITHROMYCIN ANHYDROUS
     Indication: PRODUCT USED FOR UNKNOWN INDICATION
     Dosage: ADMINISTRATION STARTED IN THIRD WEEK ON NOV-2017
     Route: 048
  2. VESICARE [Concomitant]
     Active Substance: SOLIFENACIN SUCCINATE
     Dosage: ADMINISTRATION STARTED IN THIRD WEEK ON NOV-2017
     Route: 048
     Dates: end: 20171207
  3. CARBOCISTEINE [Concomitant]
     Active Substance: CARBOCYSTEINE
     Route: 048
  4. CANAGLU [Suspect]
     Active Substance: CANAGLIFLOZIN
     Indication: PRODUCT USED FOR UNKNOWN INDICATION
     Dosage: ADMINISTRATION STARTED IN THIRD WEEK ON NOV-2017
     Route: 048
     Dates: start: 20171121, end: 20171204
  5. CEFCAPENE PIVOXIL HYDROCHLORIDE [Suspect]
     Active Substance: CEFCAPENE PIVOXIL HYDROCHLORIDE
     Indication: PRODUCT USED FOR UNKNOWN INDICATION
     Dosage: ADMINISTRATION STARTED IN THIRD WEEK ON NOV-2017
     Route: 048
  6. HERBESSER [Suspect]
     Active Substance: DILTIAZEM HYDROCHLORIDE
     Indication: PRODUCT USED FOR UNKNOWN INDICATION
     Route: 048
  7. TEPRENONE [Concomitant]
     Active Substance: TEPRENONE
     Route: 048
  8. ALMYLAR [Concomitant]
     Active Substance: ATENOLOL
     Route: 048
  9. ZETIA [Concomitant]
     Active Substance: EZETIMIBE
     Dosage: ADMINISTRATION STARTED IN THIRD WEEK ON NOV-2017
     Route: 048
     Dates: start: 20170126, end: 20171207
  10. BAYASPIRIN [Concomitant]
     Active Substance: ASPIRIN
     Dosage: ADMINISTRATION STARTED IN THIRD WEEK ON NOV-2017
     Route: 048
  11. PONSTEL [Concomitant]
     Active Substance: MEFENAMIC ACID
     Route: 048
  12. DIMEMORFAN PHOSPHATE [Concomitant]
     Active Substance: DIMEMORFAN PHOSPHATE
     Route: 048
  13. MEDICON [Concomitant]
     Active Substance: DEXTROMETHORPHAN HYDROBROMIDE
     Route: 048
  14. TRAZENTA [Concomitant]
     Active Substance: LINAGLIPTIN
     Dosage: ADMINISTRATION STARTED IN THIRD WEEK ON NOV-2017
     Route: 048
     Dates: start: 20170627, end: 20171207
  15. TENORMIN [Concomitant]
     Active Substance: ATENOLOL
     Dosage: ADMINISTRATION STARTED IN THIRD WEEK ON NOV-2017
     Route: 048
  16. CETRAXATE HYDROCHLORIDE [Concomitant]
     Active Substance: CETRAXATE HYDROCHLORIDE
     Route: 048
  17. MUCOBULIN [Concomitant]
     Active Substance: AMBROXOL HYDROCHLORIDE
     Route: 048
  18. IRTRA [Concomitant]
     Active Substance: IRBESARTAN\TRICHLORMETHIAZIDE
     Dosage: ADMINISTRATION STARTED IN THIRD WEEK ON NOV-2017
     Route: 048
     Dates: start: 20170420, end: 20171207
  19. CHLORPHENIRAMINE MALEATE. [Concomitant]
     Active Substance: CHLORPHENIRAMINE MALEATE
     Route: 048
  20. PLETAAL [Concomitant]
     Active Substance: CILOSTAZOL
     Dosage: ADMINISTRATION STARTED IN THIRD WEEK ON NOV-2017
     Route: 048

REACTIONS (1)
  - Toxic skin eruption [Recovering/Resolving]

NARRATIVE: CASE EVENT DATE: 20171202
